FAERS Safety Report 5424733-3 (Version None)
Quarter: 2007Q3

REPORT INFORMATION
  Report Type: 
  Country: None (occurrence: None)
  Receive Date: 20070725
  Receipt Date: 20061010
  Transmission Date: 20080115
  Serious: Yes (Other)
  Sender: FDA-Public Use
  Company Number: US-JNJFOC-20060804647

PATIENT
  Age: 71 Year
  Sex: Female
  Weight: 68.0396 kg

DRUGS (1)
  1. IMODIUM A-D [Suspect]
     Indication: DIARRHOEA
     Dosage: 4 MG, 1 IN 1 TOTAL, ORAL
     Route: 048
     Dates: start: 20060814, end: 20060814

REACTIONS (2)
  - DRUG INEFFECTIVE [None]
  - NAUSEA [None]
